FAERS Safety Report 9924483 (Version 1)
Quarter: 2014Q1

REPORT INFORMATION
  Report Type: Spontaneous
  Country: US (occurrence: US)
  Receive Date: 20140226
  Receipt Date: 20140226
  Transmission Date: 20141002
  Serious: Yes (Other)
  Sender: FDA-Public Use
  Company Number: US-ASTELLAS-2014US001798

PATIENT
  Sex: Male

DRUGS (2)
  1. PROGRAF [Suspect]
     Indication: LIVER TRANSPLANT
     Dosage: 1.5 MG, UNKNOWN/D
     Route: 048
  2. PROGRAF [Suspect]
     Indication: RENAL TRANSPLANT

REACTIONS (1)
  - Transplant [Unknown]
